FAERS Safety Report 19030739 (Version 1)
Quarter: 2021Q1

REPORT INFORMATION
  Report Type: Spontaneous
  Country: US (occurrence: US)
  Receive Date: 20210319
  Receipt Date: 20210319
  Transmission Date: 20210420
  Serious: Yes (Other)
  Sender: FDA-Public Use
  Company Number: US-SUN PHARMACEUTICAL INDUSTRIES LTD-2021R1-286733

PATIENT
  Age: 35 Year
  Sex: Female

DRUGS (1)
  1. VENLAFAXINE [Suspect]
     Active Substance: VENLAFAXINE HYDROCHLORIDE
     Indication: STATUS EPILEPTICUS
     Dosage: 1125 MILLIGRAM UNK
     Route: 065

REACTIONS (4)
  - Intentional overdose [Unknown]
  - Hypoxic-ischaemic encephalopathy [Unknown]
  - Brain oedema [Unknown]
  - Ventricular tachycardia [Unknown]
